FAERS Safety Report 18224689 (Version 1)
Quarter: 2020Q3

REPORT INFORMATION
  Report Type: Other
  Country: IT (occurrence: IT)
  Receive Date: 20200903
  Receipt Date: 20200903
  Transmission Date: 20201103
  Serious: Yes (Hospitalization)
  Sender: FDA-Public Use
  Company Number: IT-LAURUS LABS LIMITED-202000171

PATIENT

DRUGS (2)
  1. DARUNAVIR/RITONAVIR [Suspect]
     Active Substance: DARUNAVIR\RITONAVIR
     Indication: COVID-19 PNEUMONIA
     Dosage: 800/100
     Route: 065
  2. HYDROXYCHLOROQUINE [Suspect]
     Active Substance: HYDROXYCHLOROQUINE
     Indication: COVID-19 PNEUMONIA
     Route: 048

REACTIONS (2)
  - Off label use [Unknown]
  - Urinary tract infection [Unknown]
